APPROVED DRUG PRODUCT: REGROTON
Active Ingredient: CHLORTHALIDONE; RESERPINE
Strength: 50MG;0.25MG
Dosage Form/Route: TABLET;ORAL
Application: N015103 | Product #001
Applicant: SANOFI AVENTIS US LLC
Approved: Approved Prior to Jan 1, 1982 | RLD: No | RS: No | Type: DISCN